FAERS Safety Report 7907529-X (Version None)
Quarter: 2011Q4

REPORT INFORMATION
  Report Type: 
  Country: None (occurrence: None)
  Receive Date: 20111110
  Receipt Date: 20111101
  Transmission Date: 20120403
  Serious: Yes (Disabling)
  Sender: FDA-Public Use
  Company Number: PHHY2011NL72763

PATIENT
  Sex: Female
  Weight: 80 kg

DRUGS (10)
  1. EZETIMIBE [Concomitant]
     Dosage: 10/40 UG
     Route: 048
     Dates: start: 20111006
  2. NEXIUM [Concomitant]
     Dosage: 20 MG, QD
     Route: 048
  3. ONBREZ [Suspect]
     Indication: CHRONIC OBSTRUCTIVE PULMONARY DISEASE
     Dosage: 300 MG, QD
     Dates: start: 20100916, end: 20110601
  4. ASPIRIN [Concomitant]
     Dosage: 80 MG, QD
     Route: 048
     Dates: start: 20110707
  5. GLIMEPIRIDE [Concomitant]
     Dosage: 3 MG, QD
     Route: 048
     Dates: start: 20110707
  6. ALVESCO [Concomitant]
     Dates: start: 20110727
  7. HYDROCHLOROTHIAZIDE [Concomitant]
     Dosage: 25 MG, QD
     Route: 048
  8. METFORMIN HCL [Concomitant]
     Dosage: 500 MG, QD
     Route: 048
     Dates: start: 20110707
  9. NIFEDIPINE [Concomitant]
     Dosage: 30 MG, QD
     Route: 048
     Dates: start: 20111013
  10. ATROVENT [Concomitant]
     Dates: start: 20110727

REACTIONS (2)
  - FATIGUE [None]
  - MYALGIA [None]
